FAERS Safety Report 7290935-7 (Version None)
Quarter: 2011Q1

REPORT INFORMATION
  Report Type: 
  Country: None (occurrence: None)
  Receive Date: 20110214
  Receipt Date: 20110204
  Transmission Date: 20110831
  Serious: Yes (Life-Threatening)
  Sender: FDA-Public Use
  Company Number: FI-SANOFI-AVENTIS-2010SA070438

PATIENT
  Age: 71 Year
  Sex: Female

DRUGS (12)
  1. AVASTIN [Suspect]
     Route: 042
     Dates: start: 20100924, end: 20100924
  2. XELODA [Suspect]
     Route: 048
     Dates: start: 20091217
  3. OXALIPLATIN [Suspect]
     Route: 042
     Dates: start: 20091217, end: 20091217
  4. XELODA [Suspect]
     Route: 048
     Dates: start: 20100924
  5. TRAMAL [Concomitant]
  6. OXALIPLATIN [Suspect]
     Route: 042
     Dates: start: 20100924, end: 20100924
  7. GRANISETRON HCL [Concomitant]
  8. PRIMPERAN TAB [Concomitant]
  9. ZOPINOX [Concomitant]
  10. AVASTIN [Suspect]
     Route: 042
     Dates: start: 20091217, end: 20091217
  11. IMOVANE [Concomitant]
  12. PANADOL [Concomitant]

REACTIONS (3)
  - MEMORY IMPAIRMENT [None]
  - PROGRESSIVE MULTIFOCAL LEUKOENCEPHALOPATHY [None]
  - CONFUSIONAL STATE [None]
